FAERS Safety Report 8955821 (Version 1)
Quarter: 2012Q4

REPORT INFORMATION
  Report Type: 
  Country: CO (occurrence: CO)
  Receive Date: 20121210
  Receipt Date: 20121210
  Transmission Date: 20130627
  Serious: Yes (Other)
  Sender: FDA-Public Use
  Company Number: CO-PFIZER INC-2012306081

PATIENT
  Age: 13 Year
  Sex: Male

DRUGS (2)
  1. GENOTROPIN [Suspect]
     Indication: GROWTH HORMONE DEFICIENCY
     Dosage: 2.0 mg, 1x/day
     Route: 058
     Dates: start: 201007
  2. CONCERTA [Concomitant]
     Indication: ATTENTION DEFICIT DISORDER
     Dosage: 36 mg, 1x/day
     Route: 048
     Dates: start: 2008

REACTIONS (2)
  - Thyroid disorder [Not Recovered/Not Resolved]
  - Injection site pain [Not Recovered/Not Resolved]
